FAERS Safety Report 8988481 (Version 1)
Quarter: 2012Q4

REPORT INFORMATION
  Report Type: Spontaneous
  Country: US (occurrence: None)
  Receive Date: 20121224
  Receipt Date: 20121224
  Transmission Date: 20130627
  Serious: Yes (Other)
  Sender: FDA-Public Use
  Company Number: None

PATIENT
  Age: 6 Year
  Sex: Male
  Weight: 21.77 kg

DRUGS (1)
  1. VYVANSE 20 MG SHIRE LLC [Suspect]
     Indication: ADHD
     Route: 048
     Dates: start: 20110501, end: 20121219

REACTIONS (2)
  - Asthma [None]
  - Chest discomfort [None]
